FAERS Safety Report 14650919 (Version 6)
Quarter: 2018Q2

REPORT INFORMATION
  Report Type: Spontaneous
  Country: US (occurrence: US)
  Receive Date: 20180316
  Receipt Date: 20180503
  Transmission Date: 20180711
  Serious: Yes (Death)
  Sender: FDA-Public Use
  Company Number: US-CELGENEUS-USA-20180305504

PATIENT
  Age: 68 Year
  Sex: Male
  Weight: 132.3 kg

DRUGS (1)
  1. IDHIFA [Suspect]
     Active Substance: ENASIDENIB MESYLATE
     Indication: MYELODYSPLASTIC SYNDROME
     Route: 048

REACTIONS (3)
  - Multiple organ dysfunction syndrome [Fatal]
  - IDH differentiation syndrome [Fatal]
  - Acute respiratory distress syndrome [Fatal]
